FAERS Safety Report 6115748-0 (Version None)
Quarter: 2009Q1

REPORT INFORMATION
  Report Type: 
  Country: None (occurrence: None)
  Receive Date: 20090313
  Receipt Date: 20081215
  Transmission Date: 20090719
  Serious: No
  Sender: FDA-Public Use
  Company Number: US-ABBOTT-08P-163-0493126-00

PATIENT
  Sex: Male
  Weight: 97.61 kg

DRUGS (15)
  1. HUMIRA [Suspect]
     Indication: CROHN'S DISEASE
     Route: 058
     Dates: start: 20080501, end: 20080501
  2. HUMIRA [Suspect]
     Route: 058
  3. HUMIRA [Suspect]
     Route: 058
  4. HUMIRA [Suspect]
     Dates: start: 20080101
  5. NORTRIPTYLINE HCL [Concomitant]
     Indication: PAIN
     Route: 048
  6. TRICOR [Concomitant]
     Indication: BLOOD CHOLESTEROL INCREASED
     Route: 048
  7. LIPITOR [Concomitant]
     Indication: BLOOD CHOLESTEROL INCREASED
     Route: 048
  8. LISINOPRIL [Concomitant]
     Indication: HYPERTENSION
     Route: 048
  9. ATENOLOL [Concomitant]
     Indication: CARDIAC DISORDER
     Route: 048
  10. PLAVIX [Concomitant]
     Indication: ANTICOAGULANT THERAPY
     Route: 048
  11. NEXIUM [Concomitant]
     Indication: DYSPEPSIA
     Route: 048
  12. ASPIRIN [Concomitant]
     Indication: DRUG USE FOR UNKNOWN INDICATION
     Route: 048
  13. DICYCLOMINE [Concomitant]
     Indication: PAIN
     Route: 048
  14. DICYCLOMINE [Concomitant]
     Indication: MUSCLE SPASMS
  15. LIALDA [Concomitant]
     Indication: CROHN'S DISEASE
     Route: 048

REACTIONS (3)
  - DRUG DELIVERY SYSTEM MALFUNCTION [None]
  - INCORRECT DOSE ADMINISTERED [None]
  - INJECTION SITE HAEMATOMA [None]
